FAERS Safety Report 11616939 (Version 6)
Quarter: 2016Q2

REPORT INFORMATION
  Report Type: Spontaneous
  Country: US (occurrence: US)
  Receive Date: 20151009
  Receipt Date: 20160427
  Transmission Date: 20160815
  Serious: No
  Sender: FDA-Public Use
  Company Number: US-PFIZER INC-2015333821

PATIENT
  Age: 64 Year
  Sex: Female
  Weight: 66.9 kg

DRUGS (23)
  1. LYRICA [Suspect]
     Active Substance: PREGABALIN
     Indication: SCIATICA
     Dosage: 225MG DAILY, 75 MG CAPSULE BY MOUTH, ONE AT 8AM AND TWO AT 6PM
     Route: 048
     Dates: start: 20150929
  2. LYRICA [Suspect]
     Active Substance: PREGABALIN
     Indication: RHEUMATOID ARTHRITIS
     Dosage: 150 MG, 2X/DAY
     Route: 048
  3. LANTUS [Concomitant]
     Active Substance: INSULIN GLARGINE
     Indication: BLOOD GLUCOSE INCREASED
     Dosage: AT BEDTIME IF HER BLOOD SUGAR IS TOO HIGH, AS NEEDED
  4. LANTUS [Concomitant]
     Active Substance: INSULIN GLARGINE
     Dosage: (SHOT OF INSULIN IN THE EVENINGS)
     Dates: start: 201601
  5. METHOTREXATE [Concomitant]
     Active Substance: METHOTREXATE
     Indication: RHEUMATOID ARTHRITIS
     Dosage: AT 6 EVERY WEDNESDAY
  6. OMEPRAZOLE. [Concomitant]
     Active Substance: OMEPRAZOLE
     Indication: DYSPEPSIA
     Dosage: UNK, 1X/DAY
     Dates: start: 201504
  7. ESTRADIOL. [Concomitant]
     Active Substance: ESTRADIOL
     Indication: HORMONE THERAPY
     Dosage: LOWEST DOSE
  8. ESTRADIOL. [Concomitant]
     Active Substance: ESTRADIOL
     Dosage: 1 MG, DAILY
     Dates: start: 1999
  9. LYRICA [Suspect]
     Active Substance: PREGABALIN
     Dosage: 150 MG, (ONE IN MORNING AND ONE AT BEDTIME BY MOUTH)
     Route: 048
     Dates: start: 201512, end: 20160329
  10. METHOTREXATE [Concomitant]
     Active Substance: METHOTREXATE
     Dosage: 2.5 MG 4 PILLS EVERY WEDNESDAY
  11. METHOTREXATE [Concomitant]
     Active Substance: METHOTREXATE
     Dosage: 2.5 MG, (6 TABLETS (15MG) EVERY WEDNESDAY MORNING)
  12. ZOLPIDEM [Concomitant]
     Active Substance: ZOLPIDEM\ZOLPIDEM TARTRATE
     Indication: SLEEP DISORDER
     Dosage: 10 MG, (ONE TABLET AT BEDTIME)
  13. GLIMEPIRIDE. [Concomitant]
     Active Substance: GLIMEPIRIDE
     Indication: DIABETES MELLITUS
     Dosage: 4 MG, 1X/DAY AT LUNCH TIME (NOON)
  14. PREDNISONE. [Concomitant]
     Active Substance: PREDNISONE
     Indication: RHEUMATOID ARTHRITIS
     Dosage: 1 HALF TABLET EVERY DAY
  15. PREDNISONE. [Concomitant]
     Active Substance: PREDNISONE
     Dosage: 2.5 MG, DAILY (? PILL )
  16. FOLIC ACID. [Concomitant]
     Active Substance: FOLIC ACID
     Indication: DYSPEPSIA
     Dosage: 1 MG, 1X/DAY
     Dates: start: 201501
  17. OMEPRAZOLE. [Concomitant]
     Active Substance: OMEPRAZOLE
     Indication: GASTROOESOPHAGEAL REFLUX DISEASE
     Dosage: 20 MG, 1X/DAY
  18. LYRICA [Suspect]
     Active Substance: PREGABALIN
     Indication: NERVE INJURY
     Dosage: 150 MG, 2X/DAY, ONE AT 4PM AND ONE AT 9PM
     Route: 048
     Dates: start: 20150928, end: 20150928
  19. LYRICA [Suspect]
     Active Substance: PREGABALIN
     Dosage: 75 MG, 2X/DAY
     Route: 048
     Dates: start: 2015
  20. ESTRADIOL. [Concomitant]
     Active Substance: ESTRADIOL
     Dosage: 1 EVERY MORNING
  21. METFORMIN [Concomitant]
     Active Substance: METFORMIN HYDROCHLORIDE
     Indication: DIABETES MELLITUS
     Dosage: 500MG, 3X/DAY (BEFORE BREAKFAST, AT LUNCH TIME, AND AT 5PM)
     Dates: start: 1991
  22. GLIMEPIRIDE. [Concomitant]
     Active Substance: GLIMEPIRIDE
     Indication: BLOOD GLUCOSE ABNORMAL
  23. PREDNISONE. [Concomitant]
     Active Substance: PREDNISONE
     Dosage: 2.5 MG, UNK

REACTIONS (23)
  - Peripheral swelling [Unknown]
  - Wrong technique in product usage process [Unknown]
  - Nausea [Recovered/Resolved]
  - Vision blurred [Recovering/Resolving]
  - Drug hypersensitivity [Unknown]
  - Pain [Recovering/Resolving]
  - Influenza like illness [Recovered/Resolved]
  - Bone pain [Unknown]
  - Weight increased [Unknown]
  - Feeling abnormal [Unknown]
  - Headache [Unknown]
  - Cough [Recovering/Resolving]
  - Arthralgia [Unknown]
  - Upper respiratory tract infection [Recovering/Resolving]
  - Gait disturbance [Recovering/Resolving]
  - Oropharyngeal pain [Recovering/Resolving]
  - Dizziness [Unknown]
  - Drug effect incomplete [Unknown]
  - Insomnia [Unknown]
  - Dyspnoea [Recovering/Resolving]
  - Blood test abnormal [Unknown]
  - Blood glucose increased [Recovering/Resolving]
  - Abdominal distension [Not Recovered/Not Resolved]

NARRATIVE: CASE EVENT DATE: 20151005
